FAERS Safety Report 20150661 (Version 1)
Quarter: 2021Q4

REPORT INFORMATION
  Report Type: Report from Study
  Country: US (occurrence: US)
  Receive Date: 20211206
  Receipt Date: 20211206
  Transmission Date: 20220303
  Serious: Yes (Hospitalization)
  Sender: FDA-Public Use
  Company Number: US-BIOGEN-2020BI00870673

PATIENT
  Sex: Female

DRUGS (5)
  1. TECFIDERA [Suspect]
     Active Substance: DIMETHYL FUMARATE
     Indication: Multiple sclerosis
     Dosage: AT NIGHT
     Route: 065
     Dates: start: 20200415
  2. TECFIDERA [Suspect]
     Active Substance: DIMETHYL FUMARATE
     Dosage: MORNING AND A NIGHT
     Route: 065
  3. TECFIDERA [Suspect]
     Active Substance: DIMETHYL FUMARATE
     Route: 065
     Dates: start: 20200407
  4. TECFIDERA [Suspect]
     Active Substance: DIMETHYL FUMARATE
     Route: 048
  5. TECFIDERA [Suspect]
     Active Substance: DIMETHYL FUMARATE
     Route: 065
     Dates: start: 20200415, end: 20211119

REACTIONS (11)
  - Multiple sclerosis relapse [Unknown]
  - Drug ineffective [Unknown]
  - Dysgraphia [Unknown]
  - Vision blurred [Unknown]
  - Gastric disorder [Recovered/Resolved]
  - Multiple sclerosis [Unknown]
  - Memory impairment [Unknown]
  - Burning sensation [Unknown]
  - Urticaria [Unknown]
  - Rash [Unknown]
  - Flushing [Unknown]

NARRATIVE: CASE EVENT DATE: 20200101
